FAERS Safety Report 11386405 (Version 1)
Quarter: 2015Q3

REPORT INFORMATION
  Report Type: Spontaneous
  Country: US (occurrence: None)
  Receive Date: 20150813
  Receipt Date: 20150813
  Transmission Date: 20151125
  Serious: Yes (Disabling)
  Sender: FDA-Public Use
  Company Number: None

PATIENT
  Age: 12 Year
  Sex: Female
  Weight: 65 kg

DRUGS (1)
  1. BUPIVICAINE 0.5% 10ML AUROMEDICS [Suspect]
     Active Substance: BUPIVACAINE
     Indication: ANAESTHESIA

REACTIONS (2)
  - Necrosis [None]
  - Blister [None]

NARRATIVE: CASE EVENT DATE: 20150812
